FAERS Safety Report 23611685 (Version 1)
Quarter: 2024Q1

REPORT INFORMATION
  Report Type: Spontaneous
  Country: US (occurrence: US)
  Receive Date: 20240308
  Receipt Date: 20240308
  Transmission Date: 20240410
  Serious: No
  Sender: FDA-Public Use
  Company Number: US-BIOGEN-2024BI01254005

PATIENT
  Sex: Female

DRUGS (6)
  1. TECFIDERA [Suspect]
     Active Substance: DIMETHYL FUMARATE
     Indication: Multiple sclerosis
     Route: 050
  2. LISINOPRIL [Concomitant]
     Active Substance: LISINOPRIL
     Route: 050
  3. DULOXETINE [Concomitant]
     Active Substance: DULOXETINE
     Route: 050
  4. PREGABALIN [Concomitant]
     Active Substance: PREGABALIN
     Route: 050
  5. OMEPRAZOLE [Concomitant]
     Active Substance: OMEPRAZOLE
     Route: 050
  6. MELOXICAM [Concomitant]
     Active Substance: MELOXICAM
     Route: 050

REACTIONS (1)
  - Drug ineffective [Unknown]
